FAERS Safety Report 23544234 (Version 3)
Quarter: 2024Q2

REPORT INFORMATION
  Report Type: Spontaneous
  Country: JP (occurrence: JP)
  Receive Date: 20240220
  Receipt Date: 20240415
  Transmission Date: 20240715
  Serious: Yes (Hospitalization, Other)
  Sender: FDA-Public Use
  Company Number: JP-MLMSERVICE-20240208-4823533-1

PATIENT
  Age: 70 Year
  Sex: Male

DRUGS (14)
  1. GEMCITABINE HYDROCHLORIDE [Suspect]
     Active Substance: GEMCITABINE HYDROCHLORIDE
     Indication: Pancreatic carcinoma metastatic
     Dosage: 1000 MG/M2, CYCLIC, EVERY 2 WEEKS, SIX CYCLES OF GNP
  2. GEMCITABINE HYDROCHLORIDE [Suspect]
     Active Substance: GEMCITABINE HYDROCHLORIDE
     Dosage: EVERY 4 WEEKS, SIX CYCLES).
  3. OXALIPLATIN [Suspect]
     Active Substance: OXALIPLATIN
     Indication: Pancreatic carcinoma metastatic
     Dosage: 85 MG/M2, CYCLIC, OF BODY SURFACE AREA, EVERY 2  WEEKS, , SIX CYCLES
  4. OXALIPLATIN [Suspect]
     Active Substance: OXALIPLATIN
     Dosage: UNK, ONTINUED FOR 4 MONTHS (EVERY 4 WEEKS, CYCLIC
  5. LEUCOVORIN [Suspect]
     Active Substance: LEUCOVORIN\LEUCOVORIN CALCIUM
     Indication: Pancreatic carcinoma metastatic
     Dosage: 200 MG/M2, CYCLIC, , SIX CYCLES
  6. LEUCOVORIN [Suspect]
     Active Substance: LEUCOVORIN\LEUCOVORIN CALCIUM
     Dosage: ONTINUED FOR 4 MONTHS (EVERY 4 WEEKS, CYCLIC
  7. IRINOTECAN HYDROCHLORIDE [Suspect]
     Active Substance: IRINOTECAN HYDROCHLORIDE
     Indication: Pancreatic carcinoma metastatic
     Dosage: 150 MG/M2, CYCLIC, EVERY 2  WEEKS, , SIX CYCLES
  8. IRINOTECAN HYDROCHLORIDE [Suspect]
     Active Substance: IRINOTECAN HYDROCHLORIDE
     Dosage: ONTINUED FOR 4 MONTHS (EVERY 4 WEEKS, CYCLIC
  9. PACLITAXEL [Suspect]
     Active Substance: PACLITAXEL
     Indication: Pancreatic carcinoma metastatic
     Dosage: 125 MG/M2, CYCLIC, EVERY 2  WEEKS, SIX CYCLES OF GNP
  10. PACLITAXEL [Suspect]
     Active Substance: PACLITAXEL
     Dosage: UNK, FOR 6 MONTHS (EVERY 4 WEEKS, SIX CYCLES).
  11. GIMERACIL\OTERACIL\TEGAFUR [Suspect]
     Active Substance: GIMERACIL\OTERACIL POTASSIUM\TEGAFUR
     Indication: Pancreatic carcinoma metastatic
     Dosage: 100 MG/BODY/DAY FROM DAY 1 TO DAY 14 EVERY 3 WEEKS FOR 6 MONTHS (S-1 REGIMEN)
  12. FLUOROURACIL [Suspect]
     Active Substance: FLUOROURACIL
     Indication: Ductal adenocarcinoma of pancreas
     Dosage: 2400 MG/M2, CYCLIC, 46-H CONTINUOUS INFUSION, EVERY 2  WEEKS, SIX CYCLES
  13. FLUOROURACIL [Suspect]
     Active Substance: FLUOROURACIL
     Dosage: UNK, CONTINUED FOR 4 MONTHS (EVERY 4 WEEKS)
  14. FLUOROURACIL [Suspect]
     Active Substance: FLUOROURACIL
     Dosage: WITHOUT BOLUS, EVERY 2 WEEKS

REACTIONS (6)
  - Myelosuppression [Unknown]
  - Nausea [Unknown]
  - Alopecia [Unknown]
  - Neuropathy peripheral [Unknown]
  - Decreased appetite [Unknown]
  - Fatigue [Unknown]
